FAERS Safety Report 8832680 (Version 2)
Quarter: 2012Q4

REPORT INFORMATION
  Report Type: 
  Country: JP (occurrence: JP)
  Receive Date: 20121010
  Receipt Date: 20121122
  Transmission Date: 20130627
  Serious: Yes (Other)
  Sender: FDA-Public Use
  Company Number: JP-009507513-1210JPN002734

PATIENT
  Age: 87 Year
  Sex: Female

DRUGS (8)
  1. NU-LOTAN TABLET 50 [Suspect]
     Dosage: 50 mg, qd
     Route: 048
  2. ARTIST [Concomitant]
  3. DIART [Concomitant]
  4. WARFARIN [Concomitant]
  5. GASTER [Concomitant]
  6. LIVALO [Concomitant]
  7. THEO-DUR [Concomitant]
  8. BASEN [Concomitant]

REACTIONS (1)
  - Pancytopenia [Unknown]
